FAERS Safety Report 8848368 (Version 3)
Quarter: 2013Q2

REPORT INFORMATION
  Report Type: Spontaneous
  Country: US (occurrence: US)
  Receive Date: 20121018
  Receipt Date: 20130502
  Transmission Date: 20140414
  Serious: Yes (Hospitalization, Other)
  Sender: FDA-Public Use
  Company Number: US-ASTRAZENECA-2012SE70656

PATIENT
  Age: 49 Year
  Sex: Female

DRUGS (1)
  1. NEXIUM [Suspect]
     Route: 048

REACTIONS (7)
  - Convulsion [Unknown]
  - Inflammation [Unknown]
  - Cerebrovascular accident [Unknown]
  - Ulcer [Unknown]
  - Aphagia [Unknown]
  - Visual impairment [Unknown]
  - Oropharyngeal pain [Unknown]
